FAERS Safety Report 17051870 (Version 2)
Quarter: 2019Q4

REPORT INFORMATION
  Report Type: Spontaneous
  Country: IL (occurrence: IL)
  Receive Date: 20191120
  Receipt Date: 20191227
  Transmission Date: 20200122
  Serious: Yes (Life-Threatening, Hospitalization, Other)
  Sender: FDA-Public Use
  Company Number: NVSC2019IL041090

PATIENT
  Age: 4 Year
  Sex: Male
  Weight: 20 kg

DRUGS (6)
  1. REVOLADE [Suspect]
     Active Substance: ELTROMBOPAG
     Indication: IMMUNE THROMBOCYTOPENIC PURPURA
     Dosage: 75 MG, QD
     Route: 065
  2. REVOLADE [Suspect]
     Active Substance: ELTROMBOPAG
     Dosage: 25 MG
     Route: 048
     Dates: start: 20190708
  3. REVOLADE [Suspect]
     Active Substance: ELTROMBOPAG
     Dosage: 75 MG
     Route: 048
     Dates: end: 201910
  4. REVOLADE [Suspect]
     Active Substance: ELTROMBOPAG
     Dosage: 50 MG, QD
     Route: 048
     Dates: start: 201910
  5. REVOLADE [Suspect]
     Active Substance: ELTROMBOPAG
     Dosage: 50 MG, QD
     Route: 065
  6. REVOLADE [Suspect]
     Active Substance: ELTROMBOPAG
     Dosage: 75 MG
     Route: 048
     Dates: start: 201911, end: 20191115

REACTIONS (14)
  - Skin discolouration [Unknown]
  - Hepatic enzyme increased [Unknown]
  - Diarrhoea [Unknown]
  - Encephalopathy [Unknown]
  - Depressed level of consciousness [Unknown]
  - Wrong technique in product usage process [Unknown]
  - Vomiting [Unknown]
  - Somnolence [Unknown]
  - Platelet count increased [Unknown]
  - Ammonia increased [Unknown]
  - Dehydration [Unknown]
  - Altered state of consciousness [Unknown]
  - Viral infection [Unknown]
  - Platelet count decreased [Unknown]

NARRATIVE: CASE EVENT DATE: 201910
